FAERS Safety Report 4956301-1 (Version None)
Quarter: 2006Q1

REPORT INFORMATION
  Report Type: 
  Country: None (occurrence: None)
  Receive Date: 20060323
  Receipt Date: 20060313
  Transmission Date: 20060701
  Serious: Yes (Hospitalization)
  Sender: FDA-Public Use
  Company Number: SGB1-2006-00152

PATIENT
  Age: 84 Year
  Sex: Female

DRUGS (4)
  1. MIDODRINE ( MIDODRINE) TABLET [Suspect]
     Indication: ORTHOSTATIC HYPOTENSION
     Dosage: 5 MG, DAILY, ORAL
     Route: 048
     Dates: start: 20051015, end: 20060123
  2. EXELON [Suspect]
     Indication: DEMENTIA ALZHEIMER'S TYPE
     Dosage: 2X/DAY;BID
     Dates: start: 20000616, end: 20060123
  3. EBIXA (MEMANTINE HYDROCHLORIDE) [Suspect]
     Indication: DEMENTIA ALZHEIMER'S TYPE
     Dosage: 2X/DAY;BID
     Dates: start: 20000615, end: 20060123
  4. PAROXETINE HYDROCHLORIDE [Suspect]
     Indication: DYSTHYMIC DISORDER
     Dosage: 2X/DAY;BID
     Dates: start: 20020815, end: 20060123

REACTIONS (1)
  - HEPATITIS CHOLESTATIC [None]
